FAERS Safety Report 4909624-6 (Version None)
Quarter: 2006Q1

REPORT INFORMATION
  Report Type: 
  Country: None (occurrence: None)
  Receive Date: 20060209
  Receipt Date: 20060123
  Transmission Date: 20060701
  Serious: Yes (Hospitalization, Other)
  Sender: FDA-Public Use
  Company Number: US200601003868

PATIENT
  Age: 81 Year
  Sex: Female

DRUGS (3)
  1. FORTEO [Suspect]
     Dates: start: 20040601, end: 20051001
  2. FORTEO [Suspect]
     Dates: start: 20051127
  3. FORTEO [Concomitant]

REACTIONS (9)
  - APPENDIX DISORDER [None]
  - DIARRHOEA [None]
  - DRUG INEFFECTIVE [None]
  - JAW DISORDER [None]
  - KNEE ARTHROPLASTY [None]
  - MALAISE [None]
  - PHARMACEUTICAL PRODUCT COMPLAINT [None]
  - TOOTH DISORDER [None]
  - TOOTH INFECTION [None]
